FAERS Safety Report 17459887 (Version 1)
Quarter: 2020Q1

REPORT INFORMATION
  Report Type: Spontaneous
  Country: US (occurrence: US)
  Receive Date: 20200225
  Receipt Date: 20200225
  Transmission Date: 20200409
  Serious: Yes (Hospitalization)
  Sender: FDA-Public Use
  Company Number: US-IGSA-SR10005778

PATIENT
  Age: 47 Year
  Sex: Female
  Weight: 65 kg

DRUGS (22)
  1. GABAPENTIN. [Concomitant]
     Active Substance: GABAPENTIN
  2. PROLASTIN-C [Suspect]
     Active Substance: .ALPHA.1-PROTEINASE INHIBITOR HUMAN
     Indication: ALPHA-1 ANTI-TRYPSIN DEFICIENCY
     Dosage: 3900 MG, Q.WK.
     Route: 042
     Dates: start: 20180111, end: 20180111
  3. PREDNISONE. [Concomitant]
     Active Substance: PREDNISONE
  4. PROZAC [Concomitant]
     Active Substance: FLUOXETINE HYDROCHLORIDE
  5. VITAMIN B COMPLEX [Concomitant]
     Active Substance: CYANOCOBALAMIN\DEXPANTHENOL\NIACINAMIDE\PYRIDOXINE HYDROCHLORIDE\RIBOFLAVIN 5^-PHOSPHATE SODIUM\THIAMINE HYDROCHLORIDE\VITAMIN B COMPLEX
  6. VIT D [Concomitant]
     Active Substance: VITAMIN D NOS
  7. PROLASTIN-C [Suspect]
     Active Substance: .ALPHA.1-PROTEINASE INHIBITOR HUMAN
     Dosage: 3900 MG, Q.WK.
     Route: 042
     Dates: start: 20171228, end: 20180111
  8. CLONAZEPAM. [Concomitant]
     Active Substance: CLONAZEPAM
  9. GUAIFENEX                          /00048001/ [Concomitant]
     Active Substance: GUAIFENESIN
  10. OMEGA 3                            /01333901/ [Concomitant]
     Active Substance: FISH OIL\TOCOPHEROL
  11. OXYCODONE [Concomitant]
     Active Substance: OXYCODONE
  12. SENNA LAXATIVE [Concomitant]
     Active Substance: SENNOSIDES
  13. SPIRIVA [Concomitant]
     Active Substance: TIOTROPIUM BROMIDE MONOHYDRATE
  14. PROLASTIN-C [Suspect]
     Active Substance: .ALPHA.1-PROTEINASE INHIBITOR HUMAN
     Dosage: 3900 MG, Q.WK.
     Route: 042
     Dates: start: 20171214, end: 20180111
  15. VITAMIN K [Concomitant]
     Active Substance: PHYTONADIONE
  16. DILTIAZEM. [Concomitant]
     Active Substance: DILTIAZEM
  17. LEVALBUTEROL                       /01419301/ [Concomitant]
     Active Substance: LEVALBUTEROL
  18. RANITIDINE. [Concomitant]
     Active Substance: RANITIDINE
  19. VITAMIN B12 [Concomitant]
     Active Substance: CYANOCOBALAMIN
  20. PROLASTIN-C [Suspect]
     Active Substance: .ALPHA.1-PROTEINASE INHIBITOR HUMAN
     Dosage: 3900 MG, Q.WK.
     Route: 042
     Dates: start: 20171129, end: 20180111
  21. ADVAIR HFA [Concomitant]
     Active Substance: FLUTICASONE PROPIONATE\SALMETEROL XINAFOATE
  22. FUROSEMIDE. [Concomitant]
     Active Substance: FUROSEMIDE

REACTIONS (1)
  - Rash [Recovering/Resolving]

NARRATIVE: CASE EVENT DATE: 20171214
